FAERS Safety Report 14472706 (Version 2)
Quarter: 2018Q1

REPORT INFORMATION
  Report Type: Spontaneous
  Country: JP (occurrence: JP)
  Receive Date: 20180201
  Receipt Date: 20180304
  Transmission Date: 20180509
  Serious: No
  Sender: FDA-Public Use
  Company Number: JP-TAKEDA-2018TJP002072

PATIENT
  Age: 8 Decade
  Sex: Male

DRUGS (1)
  1. NESINA [Suspect]
     Active Substance: ALOGLIPTIN BENZOATE
     Indication: PANCREATOGENOUS DIABETES
     Dosage: 25 MG, UNK
     Route: 048

REACTIONS (1)
  - No adverse event [Unknown]
